FAERS Safety Report 14641101 (Version 2)
Quarter: 2018Q2

REPORT INFORMATION
  Report Type: Report from Study
  Country: JP (occurrence: JP)
  Receive Date: 20180315
  Receipt Date: 20180402
  Transmission Date: 20180711
  Serious: Yes (Hospitalization)
  Sender: FDA-Public Use
  Company Number: JP-JT-EVA201601582KERYXP-002

PATIENT
  Age: 58 Year
  Sex: Female
  Weight: 69 kg

DRUGS (28)
  1. CARDENALIN [Concomitant]
     Active Substance: DOXAZOSIN MESYLATE
     Dosage: 4 MG, QD
     Route: 048
     Dates: start: 20160107, end: 20160928
  2. NIFEDIPINE. [Concomitant]
     Active Substance: NIFEDIPINE
     Dosage: 10 MG, QD
     Route: 048
     Dates: start: 20160114, end: 20161130
  3. NESP [Concomitant]
     Active Substance: DARBEPOETIN ALFA
     Dosage: 20 MICRO-G, UNK
     Route: 042
  4. ATELEC [Concomitant]
     Active Substance: CILNIDIPINE
     Dosage: 1 DF, QD
     Route: 048
     Dates: start: 20100902, end: 20161130
  5. SHAKUYAKUKANZOTO [Concomitant]
     Active Substance: HERBALS
     Dosage: 2.5 G, QD
     Route: 048
     Dates: start: 20150917
  6. CALTAN [Concomitant]
     Active Substance: CALCIUM CARBONATE
     Indication: HYPERPHOSPHATAEMIA
     Dosage: 1500 MG, QD
     Route: 048
     Dates: start: 20160303, end: 20160427
  7. SODIUM BICARBONATE. [Concomitant]
     Active Substance: SODIUM BICARBONATE
     Indication: PROPHYLAXIS
     Dosage: 2 G, QD
     Route: 048
     Dates: start: 20160328, end: 20160516
  8. NESP [Concomitant]
     Active Substance: DARBEPOETIN ALFA
     Dosage: 20 MICRO-G, UNK
     Route: 042
  9. ARTIST [Concomitant]
     Active Substance: CARVEDILOL
     Dosage: 2.5 MG, QD
     Route: 048
     Dates: start: 20091119
  10. CALCITRIOL. [Concomitant]
     Active Substance: CALCITRIOL
     Indication: HYPERPARATHYROIDISM SECONDARY
     Dosage: 0.25 MICRO-G, QD
     Route: 048
     Dates: start: 20160831
  11. NESP [Concomitant]
     Active Substance: DARBEPOETIN ALFA
     Indication: NEPHROGENIC ANAEMIA
     Dosage: 30 MICRO-G, UNK
     Route: 042
  12. LIVALO [Concomitant]
     Active Substance: PITAVASTATIN CALCIUM
     Dosage: 2 MG, QD
     Route: 048
  13. NEXIUM [Concomitant]
     Active Substance: ESOMEPRAZOLE MAGNESIUM
     Indication: HYPERCHLORHYDRIA
     Dosage: 20 MG, QD
     Route: 048
     Dates: start: 20160824, end: 20161214
  14. NESP [Concomitant]
     Active Substance: DARBEPOETIN ALFA
     Dosage: 30 MICRO-G, UNK
     Route: 042
  15. CINACALCET HYDROCHLORIDE. [Concomitant]
     Active Substance: CINACALCET HYDROCHLORIDE
     Dosage: 12.5 MG, QD
     Route: 048
     Dates: start: 20161201, end: 20170410
  16. NESP [Concomitant]
     Active Substance: DARBEPOETIN ALFA
     Dosage: 10 MICRO-G, UNK
     Route: 042
  17. PLETAAL [Concomitant]
     Active Substance: CILOSTAZOL
     Dosage: 200 MG, QD
     Route: 048
     Dates: start: 20141217, end: 20160728
  18. CALTAN [Concomitant]
     Active Substance: CALCIUM CARBONATE
     Dosage: 3000 MG, QD
     Route: 048
     Dates: start: 20160428
  19. SENNOSIDE                          /00571901/ [Concomitant]
     Active Substance: SENNOSIDES A AND B
     Dosage: 2 DF, QD
     Route: 048
     Dates: start: 20160525
  20. CINACALCET HYDROCHLORIDE. [Concomitant]
     Active Substance: CINACALCET HYDROCHLORIDE
     Indication: HYPERPARATHYROIDISM SECONDARY
     Dosage: 25 MG, QD
     Route: 048
     Dates: start: 20160928, end: 20161130
  21. NESP [Concomitant]
     Active Substance: DARBEPOETIN ALFA
     Dosage: 20 MICRO-G, UNK
     Route: 042
  22. NESP [Concomitant]
     Active Substance: DARBEPOETIN ALFA
     Dosage: 5 MICRO-G, UNK
     Route: 042
  23. TENELIA [Concomitant]
     Active Substance: TENELIGLIPTIN
     Dosage: 20 MG, QD
     Route: 048
     Dates: start: 20160303
  24. LANSOPRAZOLE. [Concomitant]
     Active Substance: LANSOPRAZOLE
     Indication: HYPERCHLORHYDRIA
     Dosage: 15 MG, QD
     Route: 048
     Dates: start: 20161215
  25. RIONA [Suspect]
     Active Substance: FERRIC CITRATE ANHYDROUS
     Indication: HYPERPHOSPHATAEMIA
     Dosage: 1500 MG, QD
     Route: 048
     Dates: start: 20160303
  26. FUROSEMIDE. [Concomitant]
     Active Substance: FUROSEMIDE
     Indication: DIABETIC NEPHROPATHY
     Dosage: 20 MG, QD
     Route: 048
     Dates: start: 20160303
  27. NESP [Concomitant]
     Active Substance: DARBEPOETIN ALFA
     Dosage: 10 MICRO-G, UNK
     Route: 042
  28. NESP [Concomitant]
     Active Substance: DARBEPOETIN ALFA
     Dosage: 5 MICRO-G, UNK
     Route: 042

REACTIONS (3)
  - Pyelonephritis [Recovering/Resolving]
  - Shunt occlusion [Recovering/Resolving]
  - Appendicitis perforated [Recovered/Resolved]

NARRATIVE: CASE EVENT DATE: 20170327
